FAERS Safety Report 16796623 (Version 2)
Quarter: 2019Q3

REPORT INFORMATION
  Report Type: Spontaneous
  Country: US (occurrence: US)
  Receive Date: 20190911
  Receipt Date: 20190919
  Transmission Date: 20191005
  Serious: Yes (Hospitalization)
  Sender: FDA-Public Use
  Company Number: US-ALLERGAN-1936606US

PATIENT
  Sex: Female

DRUGS (1)
  1. CITALOPRAM HYDROBROMIDE - BP [Suspect]
     Active Substance: CITALOPRAM HYDROBROMIDE
     Indication: PRODUCT USED FOR UNKNOWN INDICATION
     Dosage: OVERDOSE: 7200 MG, SINGLE
     Route: 048

REACTIONS (4)
  - Pulseless electrical activity [Recovered/Resolved]
  - Seizure [Recovered/Resolved]
  - Intentional overdose [Unknown]
  - Hypotension [Recovered/Resolved]
